FAERS Safety Report 19359742 (Version 2)
Quarter: 2022Q2

REPORT INFORMATION
  Report Type: Spontaneous
  Country: US (occurrence: US)
  Receive Date: 20210602
  Receipt Date: 20220606
  Transmission Date: 20220721
  Serious: Yes (Hospitalization, Other)
  Sender: FDA-Public Use
  Company Number: US-SUNOVION-2021SUN002035

PATIENT
  Age: 74 Year
  Sex: Female

DRUGS (2)
  1. LATUDA [Suspect]
     Active Substance: LURASIDONE HYDROCHLORIDE
     Dosage: UNK, QD (40MG OR 60MG)
     Route: 048
  2. LATUDA [Suspect]
     Active Substance: LURASIDONE HYDROCHLORIDE
     Dosage: 80 MG, QD
     Route: 048

REACTIONS (7)
  - Mental disorder [Unknown]
  - Hallucination, auditory [Unknown]
  - Schizophrenia [Unknown]
  - Feeling abnormal [Unknown]
  - Fear [Unknown]
  - Malaise [Unknown]
  - Confusional state [Unknown]
